FAERS Safety Report 22162239 (Version 1)
Quarter: 2023Q1

REPORT INFORMATION
  Report Type: Spontaneous
  Country: CN (occurrence: CN)
  Receive Date: 20230331
  Receipt Date: 20230331
  Transmission Date: 20230417
  Serious: Yes (Hospitalization)
  Sender: FDA-Public Use
  Company Number: CN-SUN PHARMACEUTICAL INDUSTRIES LTD-2023R1-382805

PATIENT
  Age: 57 Year
  Sex: Female

DRUGS (3)
  1. DEXAMETHASONE\TOBRAMYCIN [Suspect]
     Active Substance: DEXAMETHASONE\TOBRAMYCIN
     Indication: Keratitis viral
     Dosage: UNK
     Route: 065
  2. GANCICLOVIR [Suspect]
     Active Substance: GANCICLOVIR
     Indication: Keratitis viral
     Dosage: UNK
     Route: 048
  3. GANCICLOVIR [Suspect]
     Active Substance: GANCICLOVIR
     Indication: Keratitis viral
     Dosage: UNK
     Route: 065

REACTIONS (2)
  - Drug ineffective [Unknown]
  - Condition aggravated [Unknown]
